FAERS Safety Report 10232333 (Version 1)
Quarter: 2014Q2

REPORT INFORMATION
  Report Type: Spontaneous
  Country: US (occurrence: None)
  Receive Date: 20140610
  Receipt Date: 20140610
  Transmission Date: 20141212
  Serious: Yes (Other)
  Sender: FDA-Public Use
  Company Number: None

PATIENT
  Age: 57 Year
  Sex: Female

DRUGS (4)
  1. IRON DEXTRAN [Suspect]
     Indication: IRON DEFICIENCY ANAEMIA
     Dates: start: 20140606, end: 20140606
  2. DIPHENHYDRAMINE [Concomitant]
  3. FAMOTIDINE [Concomitant]
  4. VITAMIN D [Concomitant]

REACTIONS (5)
  - Dizziness [None]
  - Flushing [None]
  - Palpitations [None]
  - Chills [None]
  - Feeling cold [None]
